FAERS Safety Report 7676652-X (Version None)
Quarter: 2011Q3

REPORT INFORMATION
  Report Type: 
  Country: None (occurrence: None)
  Receive Date: 20110811
  Receipt Date: 20110805
  Transmission Date: 20111222
  Serious: Yes (Other)
  Sender: FDA-Public Use
  Company Number: US-PFIZER INC-2010060954

PATIENT
  Sex: Male
  Weight: 71.655 kg

DRUGS (7)
  1. KLONOPIN [Concomitant]
     Dosage: 2 MG, 3X/DAY
  2. ESGIC [Concomitant]
     Dosage: UNK
  3. LIPITOR [Suspect]
     Indication: LOW DENSITY LIPOPROTEIN ABNORMAL
     Dosage: UNK
     Route: 048
  4. PLAVIX [Concomitant]
     Dosage: UNK
  5. ACETYLSALICYLIC ACID [Concomitant]
     Indication: MIGRAINE
     Dosage: UNK
  6. LEXAPRO [Concomitant]
     Dosage: 20 MG, DAILY
  7. ACETAMINOPHEN AND OXYCODONE HCL [Concomitant]
     Indication: PAIN
     Dosage: 325MG/ 10MG, 4X/DAY

REACTIONS (5)
  - CONVULSION [None]
  - MUSCLE ATROPHY [None]
  - FATIGUE [None]
  - FIBROMYALGIA [None]
  - MYOCARDIAL INFARCTION [None]
